FAERS Safety Report 18972292 (Version 1)
Quarter: 2021Q1

REPORT INFORMATION
  Report Type: Spontaneous
  Country: US (occurrence: US)
  Receive Date: 20210304
  Receipt Date: 20210304
  Transmission Date: 20210420
  Serious: Yes (Other)
  Sender: FDA-Public Use
  Company Number: None

PATIENT
  Age: 66 Year
  Sex: Female

DRUGS (2)
  1. SODIUM CHLORIDE INFUSION 0.9% [Concomitant]
     Dates: start: 20210301, end: 20210301
  2. BAMLANIVIMAB. [Suspect]
     Active Substance: BAMLANIVIMAB
     Indication: COVID-19
     Route: 041
     Dates: start: 20210301, end: 20210301

REACTIONS (4)
  - Malaise [None]
  - Hypophagia [None]
  - Cough [None]
  - Mineral supplementation [None]

NARRATIVE: CASE EVENT DATE: 20210301
